FAERS Safety Report 24698308 (Version 1)
Quarter: 2024Q4

REPORT INFORMATION
  Report Type: Spontaneous
  Country: US (occurrence: US)
  Receive Date: 20241204
  Receipt Date: 20241204
  Transmission Date: 20250114
  Serious: No
  Sender: MERCK
  Company Number: US-009507513-2411USA011736

PATIENT
  Age: 68 Year
  Sex: Male

DRUGS (3)
  1. CANCIDAS [Suspect]
     Active Substance: CASPOFUNGIN ACETATE
     Indication: Prophylaxis
     Dosage: 50 MILLIGRAM/DAY
     Route: 042
  2. CUBICIN [Suspect]
     Active Substance: DAPTOMYCIN
     Indication: Prophylaxis
  3. NOXAFIL [Suspect]
     Active Substance: POSACONAZOLE
     Indication: COVID-19
     Dosage: 300 MILLIGRAM/DAY
     Route: 048

REACTIONS (1)
  - Product use in unapproved indication [Unknown]
